FAERS Safety Report 21396707 (Version 1)
Quarter: 2022Q3

REPORT INFORMATION
  Report Type: Spontaneous
  Country: US (occurrence: None)
  Receive Date: 20220930
  Receipt Date: 20220930
  Transmission Date: 20221027
  Serious: No
  Sender: FDA-Public Use
  Company Number: US-Spark Therapeutics, Inc.-US-SPK-21-00071

PATIENT
  Age: 23 Year
  Sex: Female

DRUGS (43)
  1. LUXTURNA [Suspect]
     Active Substance: VORETIGENE NEPARVOVEC-RZYL
     Indication: Leber^s congenital amaurosis
     Dates: start: 20210602, end: 20210602
  2. LUXTURNA [Suspect]
     Active Substance: VORETIGENE NEPARVOVEC-RZYL
     Dates: start: 20210616, end: 20210616
  3. LUXTURNA [Suspect]
     Active Substance: VORETIGENE NEPARVOVEC-RZYL
     Indication: Leber^s congenital amaurosis
     Dates: start: 20210602, end: 20210602
  4. LUXTURNA [Suspect]
     Active Substance: VORETIGENE NEPARVOVEC-RZYL
     Dates: start: 20210616, end: 20210616
  5. PRED FORTE [Suspect]
     Active Substance: PREDNISOLONE ACETATE
     Indication: Product used for unknown indication
     Dates: start: 20210602, end: 20210602
  6. PRED FORTE [Suspect]
     Active Substance: PREDNISOLONE ACETATE
     Dates: start: 20210616, end: 20210616
  7. PRED FORTE [Suspect]
     Active Substance: PREDNISOLONE ACETATE
     Dates: start: 20210714
  8. KENALOG [Suspect]
     Active Substance: TRIAMCINOLONE ACETONIDE
     Indication: Product used for unknown indication
     Route: 030
     Dates: start: 20210602, end: 20210602
  9. KENALOG [Suspect]
     Active Substance: TRIAMCINOLONE ACETONIDE
     Dates: start: 20210616, end: 20210616
  10. KENALOG [Suspect]
     Active Substance: TRIAMCINOLONE ACETONIDE
  11. DELTASONE [Concomitant]
     Active Substance: PREDNISONE
     Indication: Product used for unknown indication
     Dosage: START 40 MG (4 TABLETS) BY MOUTH DAILY; START 3 DAYS PRIOR TO PROCEDURE AND CONTINUE AT THIS DOSAGE
     Route: 048
     Dates: start: 20210526
  12. VIGAMOX [Concomitant]
     Active Substance: MOXIFLOXACIN HYDROCHLORIDE
     Indication: Product used for unknown indication
     Dates: start: 20210602, end: 20210602
  13. VIGAMOX [Concomitant]
     Active Substance: MOXIFLOXACIN HYDROCHLORIDE
     Dates: start: 20210616, end: 20210616
  14. DORZOLAMIDE [Concomitant]
     Active Substance: DORZOLAMIDE
     Indication: Product used for unknown indication
  15. ALPHAGAN P [Concomitant]
     Active Substance: BRIMONIDINE TARTRATE
     Indication: Product used for unknown indication
     Dates: start: 20210623, end: 20210723
  16. ALPHAGAN P [Concomitant]
     Active Substance: BRIMONIDINE TARTRATE
  17. OFIRMEV [Concomitant]
     Active Substance: ACETAMINOPHEN
     Indication: Product used for unknown indication
     Dosage: 15 MG/KG ? 59.9 KG
     Route: 042
     Dates: start: 20210602, end: 20210602
  18. OFIRMEV [Concomitant]
     Active Substance: ACETAMINOPHEN
     Dosage: 15 MG/KG ? 60.3 KG
     Route: 042
     Dates: start: 20210616, end: 20210616
  19. DIAMOX SEQUELS [Concomitant]
     Active Substance: ACETAZOLAMIDE
     Indication: Product used for unknown indication
     Dosage: 250 MG IN D5W 10 ML
     Route: 042
     Dates: start: 20210602, end: 20210602
  20. DIAMOX SEQUELS [Concomitant]
     Active Substance: ACETAZOLAMIDE
     Dosage: 250 MG IN D5W 10 ML
     Route: 042
     Dates: start: 20210616, end: 20210616
  21. ISOPTO ATROPINE [Concomitant]
     Active Substance: ATROPINE SULFATE
     Indication: Product used for unknown indication
     Dates: start: 20210602, end: 20210602
  22. ISOPTO ATROPINE [Concomitant]
     Active Substance: ATROPINE SULFATE
     Dates: start: 20210616, end: 20210616
  23. BALANCED SALT SOLUTION [Concomitant]
     Active Substance: CALCIUM CHLORIDE\MAGNESIUM CHLORIDE\POTASSIUM CHLORIDE\SODIUM ACETATE\SODIUM CHLORIDE\SODIUM CITRATE
     Indication: Product used for unknown indication
     Route: 047
     Dates: start: 20210602, end: 20210602
  24. BALANCED SALT SOLUTION [Concomitant]
     Active Substance: CALCIUM CHLORIDE\MAGNESIUM CHLORIDE\POTASSIUM CHLORIDE\SODIUM ACETATE\SODIUM CHLORIDE\SODIUM CITRATE
     Route: 047
     Dates: start: 20210616, end: 20210616
  25. MARCAINE [Concomitant]
     Active Substance: BUPIVACAINE HYDROCHLORIDE
     Indication: Product used for unknown indication
     Dates: start: 20210602, end: 20210602
  26. MARCAINE [Concomitant]
     Active Substance: BUPIVACAINE HYDROCHLORIDE
     Dates: start: 20210616, end: 20210616
  27. ANCEF [Concomitant]
     Active Substance: CEFAZOLIN SODIUM
     Indication: Product used for unknown indication
     Dosage: 100 MG / 0.5 ML IN NS
     Dates: start: 20210602, end: 20210602
  28. ANCEF [Concomitant]
     Active Substance: CEFAZOLIN SODIUM
     Dosage: 100 MG / 0.5 ML IN NS
     Dates: start: 20210616, end: 20210616
  29. EPINEPHRINE [Concomitant]
     Active Substance: EPINEPHRINE
     Indication: Product used for unknown indication
     Dates: start: 20210602, end: 20210602
  30. EPINEPHRINE [Concomitant]
     Active Substance: EPINEPHRINE
     Dates: start: 20210616, end: 20210616
  31. MAXITROL [Concomitant]
     Active Substance: DEXAMETHASONE\NEOMYCIN SULFATE\POLYMYXIN B SULFATE
     Indication: Product used for unknown indication
     Dates: start: 20210602, end: 20210602
  32. MAXITROL [Concomitant]
     Active Substance: DEXAMETHASONE\NEOMYCIN SULFATE\POLYMYXIN B SULFATE
     Dates: start: 20210616, end: 20210616
  33. BETADINE [Concomitant]
     Active Substance: POVIDONE-IODINE
     Indication: Product used for unknown indication
     Dosage: 1 BOTTLE
     Dates: start: 20210602, end: 20210602
  34. BETADINE [Concomitant]
     Active Substance: POVIDONE-IODINE
     Dosage: 1 BOTTLE
     Dates: start: 20210616, end: 20210616
  35. TETRACAINE HYDROCHLORIDE [Concomitant]
     Active Substance: TETRACAINE HYDROCHLORIDE
     Indication: Product used for unknown indication
     Dates: start: 20210602, end: 20210602
  36. TETRACAINE HYDROCHLORIDE [Concomitant]
     Active Substance: TETRACAINE HYDROCHLORIDE
     Dates: start: 20210616, end: 20210616
  37. TRISENCE [Concomitant]
     Indication: Product used for unknown indication
     Dates: start: 20210602, end: 20210602
  38. TRISENCE [Concomitant]
     Dates: start: 20210616, end: 20210616
  39. COMBO EYE DROPS [Concomitant]
     Indication: Product used for unknown indication
     Dosage: ADMINISTER TO LEFT EYE FOR EUA EVERY 10 MINUTES THREE TIMES BEFORE SURGERY, CYCLOPENTOLATE 1% - TROP
     Dates: start: 20210602, end: 20210602
  40. COMBO EYE DROPS [Concomitant]
     Dates: start: 20210616, end: 20210616
  41. DECADRON [Concomitant]
     Active Substance: DEXAMETHASONE
     Indication: Product used for unknown indication
     Dates: start: 20210602, end: 20210602
  42. DECADRON [Concomitant]
     Active Substance: DEXAMETHASONE
     Dates: start: 20210616, end: 20210616
  43. COSOPT [Concomitant]
     Active Substance: DORZOLAMIDE HYDROCHLORIDE\TIMOLOL MALEATE
     Indication: Product used for unknown indication
     Dosage: 22.3-6.8 MG/ML

REACTIONS (6)
  - Vitritis [Recovered/Resolved]
  - Ocular discomfort [Recovered/Resolved]
  - Suture related complication [Recovered/Resolved]
  - Intraocular pressure increased [Not Recovered/Not Resolved]
  - Suture related complication [Recovered/Resolved]
  - Eye irritation [Recovered/Resolved]

NARRATIVE: CASE EVENT DATE: 20210623
